FAERS Safety Report 6083228-7 (Version None)
Quarter: 2009Q1

REPORT INFORMATION
  Report Type: 
  Country: None (occurrence: None)
  Receive Date: 20090213
  Receipt Date: 20090213
  Transmission Date: 20090719
  Serious: Yes (Other)
  Sender: FDA-Public Use
  Company Number: None

PATIENT
  Age: 75 Year
  Sex: Male
  Weight: 99.7913 kg

DRUGS (1)
  1. AVODART [Suspect]
     Indication: PROSTATOMEGALY
     Dosage: 0.5 MG 1 PER DAY
     Dates: start: 20080225, end: 20080725

REACTIONS (3)
  - BREAST DISCOMFORT [None]
  - GYNAECOMASTIA [None]
  - NIPPLE PAIN [None]
